FAERS Safety Report 7944045-3 (Version None)
Quarter: 2011Q4

REPORT INFORMATION
  Report Type: 
  Country: None (occurrence: None)
  Receive Date: 20111128
  Receipt Date: 20111117
  Transmission Date: 20120403
  Serious: Yes (Life-Threatening, Hospitalization)
  Sender: FDA-Public Use
  Company Number: US-CELGENEUS-163-21880-11063400

PATIENT
  Sex: Male

DRUGS (5)
  1. REVLIMID [Suspect]
     Indication: MULTIPLE MYELOMA
     Dosage: 10 MILLIGRAM
     Route: 048
     Dates: start: 20090801
  2. COUMADIN [Concomitant]
     Route: 065
  3. DIOVAN [Concomitant]
     Dosage: 40 MILLIGRAM
     Route: 065
  4. GABAPENTIN [Concomitant]
     Dosage: 100 MILLIGRAM
     Route: 065
  5. LIPITOR [Concomitant]
     Dosage: 20 MILLIGRAM
     Route: 065

REACTIONS (3)
  - HEADACHE [None]
  - NAUSEA [None]
  - BRADYCARDIA [None]
